FAERS Safety Report 7509639-8 (Version None)
Quarter: 2011Q2

REPORT INFORMATION
  Report Type: 
  Country: None (occurrence: None)
  Receive Date: 20110527
  Receipt Date: 20110518
  Transmission Date: 20111010
  Serious: Yes (Other)
  Sender: FDA-Public Use
  Company Number: GB-ASTRAZENECA-2011SE29864

PATIENT
  Age: 55 Year
  Sex: Female

DRUGS (8)
  1. SEROQUEL [Suspect]
     Indication: SLEEP DISORDER
     Route: 048
     Dates: start: 19990101
  2. ALBUTEROL SULFATE AUTOHALER [Concomitant]
  3. MAXAIR [Concomitant]
  4. CELEXA [Concomitant]
  5. SEROQUEL [Suspect]
     Indication: BIPOLAR DISORDER
     Route: 048
     Dates: start: 19990101
  6. ADVAIR DISKUS 100/50 [Concomitant]
  7. MAXALT [Concomitant]
  8. LISINOPRIL [Concomitant]

REACTIONS (2)
  - LEIOMYOSARCOMA [None]
  - OFF LABEL USE [None]
